FAERS Safety Report 8056227-3 (Version None)
Quarter: 2012Q1

REPORT INFORMATION
  Report Type: 
  Country: None (occurrence: None)
  Receive Date: 20120119
  Receipt Date: 20120112
  Transmission Date: 20120608
  Serious: Yes (Hospitalization)
  Sender: FDA-Public Use
  Company Number: PHHY2012US002697

PATIENT
  Age: 65 Year
  Sex: Male

DRUGS (1)
  1. FLUMAZENIL [Suspect]

REACTIONS (3)
  - ANAPHYLACTIC REACTION [None]
  - ERYTHEMA [None]
  - BLOOD PRESSURE DECREASED [None]
